FAERS Safety Report 13611838 (Version 1)
Quarter: 2017Q2

REPORT INFORMATION
  Report Type: Spontaneous
  Country: DE (occurrence: DE)
  Receive Date: 20170605
  Receipt Date: 20170605
  Transmission Date: 20170830
  Serious: Yes (Other)
  Sender: FDA-Public Use
  Company Number: DE-009507513-1706DEU000391

PATIENT
  Sex: Female

DRUGS (4)
  1. TORSEMIDE. [Concomitant]
     Active Substance: TORSEMIDE
  2. ZOCOR [Suspect]
     Active Substance: SIMVASTATIN
     Dosage: UNK
     Route: 048
  3. MARCUMAR [Concomitant]
     Active Substance: PHENPROCOUMON
  4. ACE HEMMER [Concomitant]

REACTIONS (2)
  - Cataract operation [Unknown]
  - Deposit eye [Unknown]
